FAERS Safety Report 15569319 (Version 1)
Quarter: 2018Q4

REPORT INFORMATION
  Report Type: Spontaneous
  Country: US (occurrence: US)
  Receive Date: 20181030
  Receipt Date: 20181030
  Transmission Date: 20190205
  Serious: Yes (Other)
  Sender: FDA-Public Use
  Company Number: None

PATIENT
  Sex: Female

DRUGS (2)
  1. BUPIVACAINE/DEXTROSE [Suspect]
     Active Substance: BUPIVACAINE\DEXTROSE
     Indication: SPINAL ANAESTHESIA
     Dosage: ?          OTHER FREQUENCY:ONCE;?
     Route: 037
     Dates: start: 20181029, end: 20181029
  2. BUPIVACAINE/DEXTROSE [Suspect]
     Active Substance: BUPIVACAINE\DEXTROSE
     Indication: SPINAL ANAESTHESIA
     Dosage: ?          OTHER FREQUENCY:ONCE;?
     Route: 037
     Dates: start: 20181029, end: 20181029

REACTIONS (1)
  - Drug ineffective [None]

NARRATIVE: CASE EVENT DATE: 20181029
